FAERS Safety Report 25610838 (Version 1)
Quarter: 2025Q3

REPORT INFORMATION
  Report Type: Report from Study
  Country: KR (occurrence: KR)
  Receive Date: 20250728
  Receipt Date: 20250728
  Transmission Date: 20251020
  Serious: Yes (Hospitalization)
  Sender: SUNOVION
  Company Number: KR-BIAL-BIAL-19032

PATIENT

DRUGS (15)
  1. ESLICARBAZEPINE ACETATE [Suspect]
     Active Substance: ESLICARBAZEPINE ACETATE
     Indication: Epilepsy
     Dosage: 400 MILLIGRAM, DAILY
     Route: 048
     Dates: start: 20241217
  2. AROTINOLOL HYDROCHLORIDE [Concomitant]
     Active Substance: AROTINOLOL HYDROCHLORIDE
     Indication: Hypertension
     Dosage: 10 MILLIGRAM, DAILY
     Route: 048
     Dates: start: 20211005
  3. ARICEPT [Concomitant]
     Active Substance: DONEPEZIL HYDROCHLORIDE
     Indication: Dementia
     Dosage: 5 MILLIGRAM, DAILY
     Route: 048
     Dates: start: 20201012
  4. Duowell [Concomitant]
     Indication: Hypertension
     Dosage: 1 DOSAGE FORM, DAILY
     Route: 048
     Dates: start: 20180808
  5. ESCITALOPRAM [Concomitant]
     Active Substance: ESCITALOPRAM OXALATE
     Indication: Prophylaxis
     Dosage: 10 MILLIGRAM, DAILY
     Route: 048
     Dates: start: 20180131
  6. LAMICTAL [Concomitant]
     Active Substance: LAMOTRIGINE
     Indication: Epilepsy
     Dosage: 100 MILLIGRAM, BID
     Route: 048
     Dates: start: 20241023
  7. Lodien [Concomitant]
     Indication: Hypertension
     Dosage: 2.5 MILLIGRAM, DAILY
     Route: 048
     Dates: start: 20171010
  8. PREGABALIN [Concomitant]
     Active Substance: PREGABALIN
     Indication: Epilepsy
     Dosage: 150 MILLIGRAM, BID
     Route: 048
     Dates: start: 20181010
  9. LYRICA [Concomitant]
     Active Substance: PREGABALIN
     Indication: Seizure
     Dosage: 75 MILLIGRAM, BID
     Route: 048
     Dates: start: 20250505, end: 20250508
  10. THIAMINE HYDROCHLORIDE [Concomitant]
     Active Substance: THIAMINE HYDROCHLORIDE
     Indication: Seizure
     Dosage: 50 MILLIGRAM, DAILY
     Route: 040
     Dates: start: 20250506, end: 20250511
  11. ATIVAN [Concomitant]
     Active Substance: LORAZEPAM
     Indication: Seizure
     Dosage: 4 MILLIGRAM, DAILY
     Route: 040
     Dates: start: 20250505, end: 20250505
  12. KEPPRA [Concomitant]
     Active Substance: LEVETIRACETAM
     Indication: Seizure
     Dosage: 500 MILLIGRAM, BID
     Route: 048
     Dates: start: 20250506
  13. MICARDIS [Concomitant]
     Active Substance: TELMISARTAN
     Indication: Seizure
     Dosage: 40 MILLIGRAM, DAILY
     Route: 048
     Dates: start: 20250507, end: 20250508
  14. CRESTOR [Concomitant]
     Active Substance: ROSUVASTATIN CALCIUM
     Indication: Seizure
     Dosage: 5 MILLIGRAM, DAILY
     Route: 048
     Dates: start: 20250507, end: 20250508
  15. Paceta [Concomitant]
     Indication: Seizure
     Dosage: 1 DOSAGE FORM, DAILY
     Route: 040
     Dates: start: 20250508, end: 20250508

REACTIONS (3)
  - Seizure [Recovered/Resolved]
  - Drug dose titration not performed [Unknown]
  - Underdose [Unknown]

NARRATIVE: CASE EVENT DATE: 20250505
